FAERS Safety Report 4931958-X (Version None)
Quarter: 2006Q1

REPORT INFORMATION
  Report Type: 
  Country: None (occurrence: None)
  Receive Date: 20060303
  Receipt Date: 20060220
  Transmission Date: 20060701
  Serious: Yes (Hospitalization)
  Sender: FDA-Public Use
  Company Number: US-MERCK-0602USA05261

PATIENT
  Age: 61 Year
  Sex: Female
  Weight: 48 kg

DRUGS (4)
  1. VIOXX [Suspect]
     Indication: BACK PAIN
     Route: 048
  2. SINGULAIR [Concomitant]
     Route: 065
  3. ZYPREXA [Concomitant]
     Route: 065
  4. PROTONIX [Concomitant]
     Route: 065

REACTIONS (5)
  - CEREBROVASCULAR ACCIDENT [None]
  - CHRONIC OBSTRUCTIVE PULMONARY DISEASE [None]
  - DYSPNOEA [None]
  - MENTAL STATUS CHANGES [None]
  - PNEUMONIA [None]
